FAERS Safety Report 6518890-5 (Version None)
Quarter: 2009Q4

REPORT INFORMATION
  Report Type: 
  Country: None (occurrence: None)
  Receive Date: 20091228
  Receipt Date: 20091217
  Transmission Date: 20100525
  Serious: Yes (Other)
  Sender: FDA-Public Use
  Company Number: CO-ELI_LILLY_AND_COMPANY-CO200908002487

PATIENT
  Age: 63 Year
  Sex: Female

DRUGS (12)
  1. BYETTA [Suspect]
     Indication: TYPE 2 DIABETES MELLITUS
     Dosage: 5 UG, 2/D
     Route: 058
     Dates: start: 20080827
  2. BYETTA [Suspect]
     Dosage: 10 UG, 2/D
     Route: 058
     Dates: start: 20090101
  3. ACETYLSALICYLIC ACID SRT [Concomitant]
     Dosage: UNK, UNKNOWN
     Route: 065
  4. TIROXIN [Concomitant]
     Dosage: UNK, UNKNOWN
     Route: 065
  5. OMEPRAZOLE [Concomitant]
     Dosage: UNK, UNKNOWN
     Route: 065
  6. LOSARTAN [Concomitant]
     Dosage: UNK, UNKNOWN
     Route: 065
  7. TRAMAL /00599201/ [Concomitant]
     Indication: BONE PAIN
     Dosage: UNK, UNKNOWN
     Route: 065
  8. TEGRETOL [Concomitant]
     Indication: BONE PAIN
     Dosage: UNK, UNKNOWN
     Route: 065
  9. METAMIZOLE SODIUM [Concomitant]
     Dosage: UNK, UNKNOWN
     Route: 065
  10. CAFFEINE [Concomitant]
     Dosage: UNK, UNKNOWN
     Route: 065
  11. CIPROFLOXACIN HCL [Concomitant]
     Indication: URINARY TRACT INFECTION
     Dosage: UNK, UNKNOWN
     Route: 065
  12. NITROFURANTOIN [Concomitant]
     Indication: URINARY TRACT INFECTION
     Dosage: UNK, UNKNOWN
     Route: 065

REACTIONS (7)
  - BLOOD THYROID STIMULATING HORMONE INCREASED [None]
  - CEREBRAL ISCHAEMIA [None]
  - EYE DISORDER [None]
  - HEADACHE [None]
  - INTENTIONAL DRUG MISUSE [None]
  - LEUKOENCEPHALOPATHY [None]
  - PAIN IN EXTREMITY [None]
